FAERS Safety Report 23088747 (Version 1)
Quarter: 2023Q4

REPORT INFORMATION
  Report Type: Report from Study
  Country: US (occurrence: US)
  Receive Date: 20231020
  Receipt Date: 20231020
  Transmission Date: 20240110
  Serious: Yes (Other)
  Sender: FDA-Public Use
  Company Number: US-Merck Healthcare KGaA-2023481154

PATIENT
  Age: 56 Year
  Sex: Female

DRUGS (5)
  1. MAVENCLAD [Suspect]
     Active Substance: CLADRIBINE
     Indication: Multiple sclerosis
     Dosage: YEAR ONE THERAPY
     Route: 048
     Dates: start: 20220903
  2. COVID-19 VACCINE [Concomitant]
     Indication: COVID-19 immunisation
     Dosage: FIRST SHOT
  3. COVID-19 VACCINE [Concomitant]
     Dosage: SECOND SHOT
  4. COVID-19 VACCINE [Concomitant]
     Dosage: FIRST BOOSTER DOSE
  5. COVID-19 VACCINE [Concomitant]
     Dosage: SECOND BOOSTER DOSE

REACTIONS (7)
  - Syncope [Unknown]
  - Cardiac disorder [Unknown]
  - Heart rate increased [Unknown]
  - COVID-19 [Unknown]
  - Fall [Unknown]
  - Contusion [Unknown]
  - Nasal injury [Unknown]

NARRATIVE: CASE EVENT DATE: 20221201
